FAERS Safety Report 9553340 (Version 1)
Quarter: 2013Q3

REPORT INFORMATION
  Report Type: Spontaneous
  Country: GB (occurrence: GB)
  Receive Date: 20130925
  Receipt Date: 20130925
  Transmission Date: 20140515
  Serious: Yes (Disabling)
  Sender: FDA-Public Use
  Company Number: GB-UCBSA-097862

PATIENT
  Age: 51 Year
  Sex: Female
  Weight: 57 kg

DRUGS (6)
  1. XYZAL [Suspect]
     Indication: MULTIPLE ALLERGIES
     Route: 048
     Dates: start: 20130801, end: 20130815
  2. BUSCOPAN [Concomitant]
     Dosage: UNKNOWN DOSE
  3. CO-DYDRAMOL [Concomitant]
     Dosage: UNKNOWN DOSE
  4. MEBEVERINE [Concomitant]
     Dosage: UNKNOWN DOSE
  5. ORAMORPH [Concomitant]
     Dosage: UNKNOWN DOSE
  6. SERETIDE [Concomitant]
     Dosage: UNKNOWN DOSE

REACTIONS (2)
  - Disturbance in attention [Unknown]
  - Somnolence [Recovered/Resolved]
